FAERS Safety Report 21724424 (Version 1)
Quarter: 2022Q4

REPORT INFORMATION
  Report Type: Spontaneous
  Country: US (occurrence: US)
  Receive Date: 20221213
  Receipt Date: 20221213
  Transmission Date: 20230113
  Serious: No
  Sender: FDA-Public Use
  Company Number: US-Dermavant-000171

PATIENT

DRUGS (2)
  1. TAPINAROF [Suspect]
     Active Substance: TAPINAROF
  2. Unspecified topical corticosteroid [Concomitant]
     Route: 061

REACTIONS (2)
  - Psoriasis [Unknown]
  - Folliculitis [Unknown]
